FAERS Safety Report 8538542-X (Version None)
Quarter: 2012Q3

REPORT INFORMATION
  Report Type: 
  Country: None (occurrence: None)
  Receive Date: 20120718
  Receipt Date: 20120718
  Transmission Date: 20120928
  Serious: No
  Sender: FDA-Public Use
  Company Number: None

PATIENT
  Sex: Female

DRUGS (4)
  1. AMATRIPLONE [Concomitant]
  2. PLAQUILINE [Concomitant]
  3. HYDROXYZINE [Suspect]
     Indication: MULTIPLE ALLERGIES
     Dosage: 25MG 1 ONE AT NIGHT ORAL
     Route: 048
  4. HYDROXYZINE [Suspect]
     Indication: PRURITUS
     Dosage: 25MG 1 ONE AT NIGHT ORAL
     Route: 048

REACTIONS (4)
  - FURUNCLE [None]
  - EYE PAIN [None]
  - URTICARIA [None]
  - HYPERSENSITIVITY [None]
